FAERS Safety Report 14594742 (Version 1)
Quarter: 2018Q1

REPORT INFORMATION
  Report Type: Spontaneous
  Country: US (occurrence: US)
  Receive Date: 20180302
  Receipt Date: 20180302
  Transmission Date: 20180509
  Serious: No
  Sender: FDA-Public Use
  Company Number: US-AKORN PHARMACEUTICALS-2017AKN01012

PATIENT
  Age: 22 Year
  Sex: Female
  Weight: 53.97 kg

DRUGS (7)
  1. ABSORICA [Suspect]
     Active Substance: ISOTRETINOIN
     Dosage: UNK
     Dates: start: 20170518, end: 2017
  2. CLARITIN [Concomitant]
     Active Substance: LORATADINE
     Dosage: UNK, AS NEEDED
  3. MYORISAN [Suspect]
     Active Substance: ISOTRETINOIN
     Indication: ACNE
     Dosage: 40 MG, 1X/DAY
     Dates: start: 20170110, end: 20170124
  4. MYORISAN [Suspect]
     Active Substance: ISOTRETINOIN
     Dosage: UNK
     Dates: start: 20170418, end: 2017
  5. OMEPRAZOLE. [Concomitant]
     Active Substance: OMEPRAZOLE
     Dosage: UNK, 1X/DAY
  6. MULTIVITAMIN [Concomitant]
     Active Substance: VITAMINS
  7. LEXAPRO [Concomitant]
     Active Substance: ESCITALOPRAM OXALATE

REACTIONS (3)
  - Pruritus [Recovered/Resolved]
  - Drug ineffective [Recovered/Resolved]
  - Rash [Recovered/Resolved]

NARRATIVE: CASE EVENT DATE: 2017
